FAERS Safety Report 11513689 (Version 1)
Quarter: 2015Q3

REPORT INFORMATION
  Report Type: Spontaneous
  Country: US (occurrence: US)
  Receive Date: 20150903
  Receipt Date: 20150903
  Transmission Date: 20151125
  Serious: No
  Sender: FDA-Public Use
  Company Number: US-ELI_LILLY_AND_COMPANY-US201211007233

PATIENT
  Sex: Female

DRUGS (1)
  1. CYMBALTA [Suspect]
     Active Substance: DULOXETINE HYDROCHLORIDE
     Indication: MAJOR DEPRESSION
     Dosage: 60 MG, QD

REACTIONS (10)
  - Drug withdrawal syndrome [Unknown]
  - Drug dose omission [Unknown]
  - Cerebral disorder [Unknown]
  - Sleep disorder [Unknown]
  - Paraesthesia [Unknown]
  - Hypersensitivity [Unknown]
  - Irritability [Unknown]
  - Hyperacusis [Unknown]
  - Dizziness [Unknown]
  - Fatigue [Unknown]
